FAERS Safety Report 13342583 (Version 2)
Quarter: 2017Q2

REPORT INFORMATION
  Report Type: Spontaneous
  Country: TN (occurrence: TN)
  Receive Date: 20170316
  Receipt Date: 20170420
  Transmission Date: 20170830
  Serious: Yes (Other)
  Sender: FDA-Public Use
  Company Number: TN-JNJFOC-20170310251

PATIENT
  Age: 49 Year
  Sex: Female
  Weight: 76 kg

DRUGS (4)
  1. IMUREL [Concomitant]
     Active Substance: AZATHIOPRINE SODIUM
     Indication: CROHN^S DISEASE
     Route: 065
     Dates: start: 201303, end: 20170214
  2. REMICADE [Suspect]
     Active Substance: INFLIXIMAB
     Indication: CROHN^S DISEASE
     Route: 042
     Dates: start: 20170110, end: 20170125
  3. SINTROM [Concomitant]
     Active Substance: ACENOCOUMAROL
     Indication: HYPERCOAGULATION
     Route: 065
     Dates: start: 1991, end: 20170218
  4. REMICADE [Suspect]
     Active Substance: INFLIXIMAB
     Indication: ANKYLOSING SPONDYLITIS
     Route: 042
     Dates: start: 20170110, end: 20170125

REACTIONS (5)
  - Pulmonary tuberculosis [Recovered/Resolved]
  - Hepatic haematoma [Unknown]
  - Septic shock [Unknown]
  - Liver disorder [Unknown]
  - Respiratory distress [Unknown]

NARRATIVE: CASE EVENT DATE: 20170203
